FAERS Safety Report 25158432 (Version 1)
Quarter: 2025Q2

REPORT INFORMATION
  Report Type: Report from Study
  Country: GB (occurrence: GB)
  Receive Date: 20250404
  Receipt Date: 20250404
  Transmission Date: 20250716
  Serious: Yes (Hospitalization, Other)
  Sender: SAMSUNG BIOEPIS
  Company Number: GB-SAMSUNG BIOEPIS-SB-2025-11597

PATIENT
  Age: 54 Year
  Sex: Female

DRUGS (1)
  1. PYZCHIVA [Suspect]
     Active Substance: USTEKINUMAB-TTWE
     Indication: Crohn^s disease

REACTIONS (4)
  - Hospitalisation [Unknown]
  - Intestinal ulcer [Unknown]
  - Appendicitis [Unknown]
  - Drug ineffective [Unknown]
